FAERS Safety Report 16418198 (Version 3)
Quarter: 2019Q3

REPORT INFORMATION
  Report Type: Report from Study
  Country: None (occurrence: US)
  Receive Date: 20190612
  Receipt Date: 20190809
  Transmission Date: 20191004
  Serious: Yes (Other)
  Sender: FDA-Public Use
  Company Number: US-ABBVIE-19K-163-2810619-00

PATIENT
  Age: 57 Year
  Sex: Male

DRUGS (1)
  1. HUMIRA [Suspect]
     Active Substance: ADALIMUMAB
     Indication: ANKYLOSING SPONDYLITIS
     Dosage: CF
     Route: 058

REACTIONS (8)
  - Memory impairment [Unknown]
  - Fall [Unknown]
  - Cervical vertebral fracture [Unknown]
  - Hypoaesthesia [Unknown]
  - Deformity [Unknown]
  - Paraesthesia [Unknown]
  - Spinal cord injury [Unknown]
  - Malaise [Unknown]

NARRATIVE: CASE EVENT DATE: 201810
